FAERS Safety Report 19305721 (Version 1)
Quarter: 2021Q2

REPORT INFORMATION
  Report Type: Spontaneous
  Country: US (occurrence: US)
  Receive Date: 20210525
  Receipt Date: 20210525
  Transmission Date: 20210717
  Serious: No
  Sender: FDA-Public Use
  Company Number: US-GLAUKOS-AVE-2021-0009-AE

PATIENT
  Sex: Male

DRUGS (13)
  1. BANDAGE CONTACT LENS [Suspect]
     Active Substance: DEVICE
     Indication: PRODUCT USED FOR UNKNOWN INDICATION
     Dosage: ?0.50D, BC 8.6^
     Dates: start: 20210107
  2. PREDNISOLONE. [Suspect]
     Active Substance: PREDNISOLONE
     Indication: INFECTIVE KERATITIS
     Dates: start: 20210111
  3. MOXIFLOXACIN. [Suspect]
     Active Substance: MOXIFLOXACIN
     Indication: PRODUCT USED FOR UNKNOWN INDICATION
     Dates: start: 20210107, end: 20210107
  4. BETADINE [Suspect]
     Active Substance: POVIDONE-IODINE
     Indication: PRODUCT USED FOR UNKNOWN INDICATION
     Dosage: 5% BETADINE IN USUAL STERILE FASHION
     Dates: start: 20210107, end: 20210107
  5. PREDNISOLONE. [Suspect]
     Active Substance: PREDNISOLONE
     Indication: PRODUCT USED FOR UNKNOWN INDICATION
     Dates: start: 20210107
  6. OFLOXACIN. [Suspect]
     Active Substance: OFLOXACIN
     Indication: PRODUCT USED FOR UNKNOWN INDICATION
     Dates: start: 20210111
  7. PHOTREXA [Suspect]
     Active Substance: RIBOFLAVIN 5^-PHOSPHATE SODIUM
     Indication: KERATOCONUS
     Dosage: EVERY 2 MINUTES FOR A TOTAL OF 30 MINUTES
     Route: 047
     Dates: start: 20210107, end: 20210107
  8. PHOTREXA [Suspect]
     Active Substance: RIBOFLAVIN 5^-PHOSPHATE SODIUM
     Dosage: EVERY 10 SECONDS UNTIL THE PACHYMETRY READ GREATER THAN 400UM
     Route: 047
     Dates: start: 20210107, end: 20210107
  9. PREDNISOLONE. [Suspect]
     Active Substance: PREDNISOLONE
     Indication: EYE PAIN
  10. NEPAFENAC [Suspect]
     Active Substance: NEPAFENAC
     Indication: PRODUCT USED FOR UNKNOWN INDICATION
     Dates: start: 20210107, end: 20210107
  11. PROPARACAINE [Suspect]
     Active Substance: PROPARACAINE
     Indication: ANAESTHESIA
     Dates: start: 20210107, end: 20210107
  12. PHOTREXA [Suspect]
     Active Substance: RIBOFLAVIN 5^-PHOSPHATE SODIUM
     Dosage: EVERY 2 MINUTES FOR A TOTAL OF 30 MINUTES
     Route: 047
     Dates: start: 20210107, end: 20210107
  13. KXL SYSTEM [Suspect]
     Active Substance: DEVICE
     Indication: KERATOCONUS
     Route: 047
     Dates: start: 20210107, end: 20210107

REACTIONS (3)
  - Keratitis fungal [Not Recovered/Not Resolved]
  - Eye pain [Unknown]
  - Incorrect product administration duration [Unknown]

NARRATIVE: CASE EVENT DATE: 20210107
